FAERS Safety Report 4413082-8 (Version None)
Quarter: 2004Q3

REPORT INFORMATION
  Report Type: 
  Country: None (occurrence: None)
  Receive Date: 20040802
  Receipt Date: 20040802
  Transmission Date: 20050211
  Serious: Yes (Life-Threatening)
  Sender: FDA-Public Use
  Company Number: None

PATIENT
  Age: 12 Year
  Sex: Male
  Weight: 40.8237 kg

DRUGS (2)
  1. CELEXA [Suspect]
     Indication: OBSESSIVE-COMPULSIVE DISORDER
     Dates: start: 20030822, end: 20031029
  2. ZOLOFT [Suspect]
     Indication: DEPRESSION
     Dates: start: 20031029, end: 20040110

REACTIONS (6)
  - AGGRESSION [None]
  - ASTHENIA [None]
  - DEPRESSION [None]
  - INSOMNIA [None]
  - SUICIDAL IDEATION [None]
  - THINKING ABNORMAL [None]
